FAERS Safety Report 25785097 (Version 1)
Quarter: 2025Q3

REPORT INFORMATION
  Report Type: Spontaneous
  Country: JP (occurrence: JP)
  Receive Date: 20250910
  Receipt Date: 20250910
  Transmission Date: 20251020
  Serious: No
  Sender: MERCK SHARP & DOHME LLC
  Company Number: JP-009507513-2319756

PATIENT
  Age: 79 Year
  Sex: Female

DRUGS (1)
  1. LAGEVRIO [Suspect]
     Active Substance: MOLNUPIRAVIR
     Indication: COVID-19 treatment
     Dosage: STRENGTH: 200 MG
     Route: 048
     Dates: start: 20250814, end: 2025

REACTIONS (3)
  - Wrong technique in product usage process [Unknown]
  - Incorrect route of product administration [Unknown]
  - No adverse event [Unknown]

NARRATIVE: CASE EVENT DATE: 20250801
